FAERS Safety Report 15854798 (Version 2)
Quarter: 2019Q1

REPORT INFORMATION
  Report Type: Spontaneous
  Country: US (occurrence: US)
  Receive Date: 20190122
  Receipt Date: 20190327
  Transmission Date: 20190417
  Serious: No
  Sender: FDA-Public Use
  Company Number: US-MYLANLABS-2018M1097522

PATIENT

DRUGS (4)
  1. FENTANYL TRANSDERMAL SYSTEM [Suspect]
     Active Substance: FENTANYL
     Indication: PANCREATITIS CHRONIC
     Dosage: 50 MICROGRAM, Q2D
     Route: 062
  2. DILAUDID [Concomitant]
     Active Substance: HYDROMORPHONE HYDROCHLORIDE
     Indication: PAIN
     Dosage: UNK
  3. FENTANYL TRANSDERMAL SYSTEM [Suspect]
     Active Substance: FENTANYL
     Dosage: UNK UNK, Q3D
     Route: 062
  4. WELLBUTRIN [Concomitant]
     Active Substance: BUPROPION HYDROCHLORIDE
     Dosage: 300 MILLIGRAM, QD

REACTIONS (3)
  - Product administered at inappropriate site [Not Recovered/Not Resolved]
  - Application site rash [Not Recovered/Not Resolved]
  - Drug effect decreased [Not Recovered/Not Resolved]
